FAERS Safety Report 8814883 (Version 1)
Quarter: 2012Q4

REPORT INFORMATION
  Report Type: 
  Country: US (occurrence: US)
  Receive Date: 20120928
  Receipt Date: 20120928
  Transmission Date: 20130627
  Serious: No
  Sender: FDA-Public Use
  Company Number: US-MUTUAL PHARMACEUTICAL COMPANY, INC.-QLQN20110018

PATIENT
  Sex: Female
  Weight: 63.56 kg

DRUGS (2)
  1. QUALAQUIN [Suspect]
     Indication: LEG CRAMPS
     Route: 048
     Dates: start: 2008
  2. DIAZEPAM [Concomitant]
     Indication: LEG CRAMPS
     Route: 048

REACTIONS (3)
  - Blood pressure increased [Not Recovered/Not Resolved]
  - Off label use [None]
  - Nausea [Not Recovered/Not Resolved]
